FAERS Safety Report 12186332 (Version 2)
Quarter: 2016Q3

REPORT INFORMATION
  Report Type: Report from Study
  Country: US (occurrence: US)
  Receive Date: 20160317
  Receipt Date: 20160711
  Transmission Date: 20161109
  Serious: Yes (Hospitalization, Other)
  Sender: FDA-Public Use
  Company Number: PHEH2016US006434

PATIENT
  Sex: Male
  Weight: 75.75 kg

DRUGS (1)
  1. ZORTRESS [Suspect]
     Active Substance: EVEROLIMUS
     Indication: PROPHYLAXIS AGAINST TRANSPLANT REJECTION
     Dosage: 1 MG, BID
     Route: 048
     Dates: start: 20151118, end: 20160305

REACTIONS (3)
  - Pulmonary hypertension [Unknown]
  - Pneumonitis [Unknown]
  - Respiratory failure [Recovering/Resolving]
